FAERS Safety Report 8358846 (Version 6)
Quarter: 2012Q4

REPORT INFORMATION
  Report Type: 
  Country: JP (occurrence: JP)
  Receive Date: 20120127
  Receipt Date: 20121206
  Transmission Date: 20130627
  Serious: Yes (Life-Threatening, Hospitalization, Other)
  Sender: FDA-Public Use
  Company Number: PHHY2012JP006652

PATIENT
  Sex: Female
  Weight: 67 kg

DRUGS (14)
  1. RASILEZ [Suspect]
     Indication: HYPERTENSION
     Dosage: 150 mg, daily
     Route: 048
     Dates: end: 20120120
  2. AVAPRO [Suspect]
     Indication: HYPERTENSION
     Dosage: 100 mg, daily
     Route: 048
     Dates: end: 20120120
  3. FLUITRAN [Suspect]
     Dosage: 2 mg, daily
     Route: 048
     Dates: end: 20120120
  4. MEDET [Suspect]
     Dosage: 750 mg, daily
     Route: 048
     Dates: end: 20120120
  5. SYAKUYAKUKANZOTO [Concomitant]
     Dosage: 60 mg, UNK
     Route: 048
  6. NIFELANTERN CR [Concomitant]
     Dosage: 40 mg, UNK
     Route: 048
     Dates: end: 20120120
  7. SITAGLIPTIN PHOSPHATE [Concomitant]
     Dosage: 50 mg, UNK
     Route: 048
     Dates: end: 20120120
  8. SILECE [Concomitant]
     Dosage: 1 mg, UNK
     Route: 048
     Dates: end: 20120120
  9. MIGLITOL [Concomitant]
     Dosage: 150 mg, UNK
     Route: 048
     Dates: end: 20120120
  10. KIPRES [Concomitant]
     Dosage: 10 mg, UNK
     Route: 048
     Dates: end: 20120120
  11. MYSLEE [Concomitant]
     Route: 048
  12. P MAGEN [Concomitant]
     Route: 048
  13. HUMALOG [Concomitant]
  14. LEVEMIR [Concomitant]

REACTIONS (6)
  - Metabolic acidosis [Unknown]
  - Sinus bradycardia [Recovered/Resolved]
  - Long QT syndrome [Recovered/Resolved]
  - Hyperkalaemia [Recovered/Resolved]
  - Lactic acidosis [Unknown]
  - Renal impairment [Recovering/Resolving]
